FAERS Safety Report 6898827-X (Version None)
Quarter: 2010Q3

REPORT INFORMATION
  Report Type: 
  Country: None (occurrence: None)
  Receive Date: 20100802
  Receipt Date: 20100719
  Transmission Date: 20110219
  Serious: Yes (Other)
  Sender: FDA-Public Use
  Company Number: GB-MYLANLABS-2010S1012791

PATIENT
  Age: 79 Year
  Sex: Male
  Weight: 89 kg

DRUGS (6)
  1. AMLODIPINE [Suspect]
     Indication: HYPERTENSION
     Route: 048
     Dates: start: 20100215, end: 20100218
  2. ACEBUTOLOL [Concomitant]
     Indication: PRODUCT USED FOR UNKNOWN INDICATION
  3. MESALAMINE [Concomitant]
     Indication: PRODUCT USED FOR UNKNOWN INDICATION
     Route: 048
  4. LANSOPRAZOLE [Concomitant]
     Indication: PRODUCT USED FOR UNKNOWN INDICATION
     Route: 048
  5. RAMIPRIL [Concomitant]
     Indication: PRODUCT USED FOR UNKNOWN INDICATION
     Dosage: DOSE 2.5 MG 04 JAN 2010 TO 01 FEB 2010
     Dates: start: 20100202
  6. SIMVASTATIN [Concomitant]
     Indication: PRODUCT USED FOR UNKNOWN INDICATION
     Route: 048

REACTIONS (4)
  - ABDOMINAL PAIN [None]
  - FATIGUE [None]
  - HEPATITIS [None]
  - LETHARGY [None]
